FAERS Safety Report 20226406 (Version 1)
Quarter: 2021Q4

REPORT INFORMATION
  Report Type: Spontaneous
  Country: IN (occurrence: IN)
  Receive Date: 20211224
  Receipt Date: 20211224
  Transmission Date: 20220304
  Serious: Yes (Other)
  Sender: FDA-Public Use
  Company Number: IN-Shilpa Medicare Limited-SML-IN-2021-01520

PATIENT
  Age: 27 Year
  Sex: Male

DRUGS (2)
  1. IMATINIB [Suspect]
     Active Substance: IMATINIB
     Indication: Chronic myeloid leukaemia
     Dosage: INITIALLY STARTED AT AN UNKNOWN DOSE.
     Route: 065
  2. IMATINIB [Suspect]
     Active Substance: IMATINIB
     Dosage: INCREASED DOSE.
     Route: 065

REACTIONS (5)
  - Splenomegaly [Unknown]
  - Pleural effusion [Recovered/Resolved]
  - Tuberculosis [Unknown]
  - Full blood count abnormal [Unknown]
  - Gene mutation [Unknown]
